FAERS Safety Report 16073660 (Version 2)
Quarter: 2019Q1

REPORT INFORMATION
  Report Type: Spontaneous
  Country: US (occurrence: US)
  Receive Date: 20190314
  Receipt Date: 20190326
  Transmission Date: 20190418
  Serious: Yes (Hospitalization, Other)
  Sender: FDA-Public Use
  Company Number: US-PFIZER INC-2018139966

PATIENT
  Age: 60 Year
  Sex: Female
  Weight: 86 kg

DRUGS (5)
  1. LYRICA [Suspect]
     Active Substance: PREGABALIN
     Indication: BACK PAIN
     Dosage: 150 MG, 3X/DAY
     Route: 048
     Dates: start: 20181120
  2. VERAPAMIL [Concomitant]
     Active Substance: VERAPAMIL HYDROCHLORIDE
     Indication: HYPERTENSION
     Dosage: 240 MG, 1X/DAY [CAPSULE WITH WATER]
  3. LYRICA [Suspect]
     Active Substance: PREGABALIN
     Indication: SPINAL OPERATION
     Dosage: 150 MG, 3X/DAY
     Route: 048
     Dates: start: 20190129, end: 2019
  4. LYRICA [Suspect]
     Active Substance: PREGABALIN
     Dosage: 150 MG, 3X/DAY
     Route: 048
     Dates: start: 20190228, end: 2019
  5. LYRICA [Suspect]
     Active Substance: PREGABALIN
     Dosage: 150 MG, 3X/DAY [WITH WATER]
     Dates: start: 2019

REACTIONS (4)
  - Pneumonia [Unknown]
  - Condition aggravated [Unknown]
  - Malaise [Unknown]
  - Nerve injury [Unknown]

NARRATIVE: CASE EVENT DATE: 201902
